FAERS Safety Report 5879321-1 (Version None)
Quarter: 2008Q3

REPORT INFORMATION
  Report Type: 
  Country: None (occurrence: None)
  Receive Date: 20080910
  Receipt Date: 20080910
  Transmission Date: 20090109
  Serious: Yes (Hospitalization)
  Sender: FDA-Public Use
  Company Number: None

PATIENT
  Sex: Male
  Weight: 151 kg

DRUGS (5)
  1. BEVACIZUMAB 15MG/KG GENENTECH [Suspect]
     Indication: GLIOBLASTOMA MULTIFORME
     Dosage: ONCE EVERY 3 WEEKS
     Dates: start: 20080725, end: 20080821
  2. BORTIZOMIB 1.7MG/M2 MILLENIUM [Suspect]
     Dosage: TWICE A WEEK X 4WEEKS
     Dates: start: 20080725, end: 20080821
  3. PROVIGIL [Concomitant]
  4. TRAZODONE HCL [Concomitant]
  5. KEPPRA [Concomitant]

REACTIONS (9)
  - ABDOMINAL PAIN [None]
  - DIARRHOEA [None]
  - GLIOBLASTOMA MULTIFORME [None]
  - ILEUS [None]
  - MALIGNANT NEOPLASM PROGRESSION [None]
  - NAUSEA [None]
  - PYREXIA [None]
  - SMALL INTESTINAL OBSTRUCTION [None]
  - VOMITING [None]
